FAERS Safety Report 10421299 (Version 3)
Quarter: 2015Q2

REPORT INFORMATION
  Report Type: Report from Study
  Country: CA (occurrence: CA)
  Receive Date: 20140831
  Receipt Date: 20150406
  Transmission Date: 20150821
  Serious: Yes (Hospitalization, Other)
  Sender: FDA-Public Use
  Company Number: PHHY2014CA108931

PATIENT
  Age: 6 Year
  Sex: Male

DRUGS (3)
  1. EXJADE [Suspect]
     Active Substance: DEFERASIROX
     Indication: THALASSAEMIA
     Dosage: 250 MG, QD
     Route: 048
     Dates: start: 20110101
  2. EXJADE [Suspect]
     Active Substance: DEFERASIROX
     Dosage: 375 MG, QD
     Route: 048
     Dates: start: 20140621
  3. EXJADE [Suspect]
     Active Substance: DEFERASIROX
     Dosage: 500 MG, QD
     Route: 048

REACTIONS (11)
  - Viral infection [Unknown]
  - Wheezing [Recovered/Resolved]
  - Eyelid oedema [Unknown]
  - Cough [Unknown]
  - Malaise [Unknown]
  - Respiratory rate increased [Recovered/Resolved]
  - Swelling face [Unknown]
  - Nasal congestion [Unknown]
  - Eye swelling [Unknown]
  - Tachycardia [Recovered/Resolved]
  - Face oedema [Unknown]

NARRATIVE: CASE EVENT DATE: 20140822
